FAERS Safety Report 19029923 (Version 1)
Quarter: 2021Q1

REPORT INFORMATION
  Report Type: Report from Study
  Country: CR (occurrence: CR)
  Receive Date: 20210318
  Receipt Date: 20210318
  Transmission Date: 20210420
  Serious: Yes (Death)
  Sender: FDA-Public Use
  Company Number: NVSC2021CR063518

PATIENT
  Sex: Female

DRUGS (1)
  1. SCAPHO [Suspect]
     Active Substance: SECUKINUMAB
     Indication: PSORIATIC ARTHROPATHY
     Dosage: 300 MG, QMO (SUBCUTANEOUS ? BENEATH THE SKIN, USUALLY VIA INJECTION)
     Route: 058
     Dates: start: 20191030, end: 20201216

REACTIONS (1)
  - Death [Fatal]
